FAERS Safety Report 5090700-5 (Version None)
Quarter: 2006Q3

REPORT INFORMATION
  Report Type: 
  Country: None (occurrence: None)
  Receive Date: 20060816
  Receipt Date: 20060803
  Transmission Date: 20061208
  Serious: Yes (Life-Threatening)
  Sender: FDA-Public Use
  Company Number: 200610069BBE

PATIENT
  Age: 15 Year
  Sex: Male
  Weight: 61 kg

DRUGS (11)
  1. KOGENATE FS [Suspect]
     Indication: FACTOR VIII DEFICIENCY
     Dosage: 9000 IU, TOTAL DAILY, INTRAVENOUS
     Route: 042
     Dates: start: 20060130, end: 20060213
  2. KOGENATE FS [Suspect]
     Indication: KIDNEY RUPTURE
     Dosage: 9000 IU, TOTAL DAILY, INTRAVENOUS
     Route: 042
     Dates: start: 20060130, end: 20060213
  3. KOGENATE FS [Suspect]
  4. KOGENATE FS [Suspect]
  5. KOGENATE FS [Suspect]
  6. KOGENATE FS [Suspect]
  7. KOGENATE FS [Suspect]
  8. BACTRIM [Concomitant]
  9. OMEPRAZOLE [Concomitant]
  10. ACETAMINOPHEN [Concomitant]
  11. MORPHINE [Concomitant]

REACTIONS (6)
  - ANTI FACTOR VIII ANTIBODY POSITIVE [None]
  - COAGULATION FACTOR VIII LEVEL DECREASED [None]
  - DRUG INTERACTION [None]
  - HAEMORRHAGE [None]
  - KIDNEY RUPTURE [None]
  - PYREXIA [None]
